FAERS Safety Report 9364862 (Version 1)
Quarter: 2013Q2

REPORT INFORMATION
  Report Type: Spontaneous
  Country: US (occurrence: US)
  Receive Date: 20130624
  Receipt Date: 20130624
  Transmission Date: 20140414
  Serious: Yes (Hospitalization)
  Sender: FDA-Public Use
  Company Number: US-GLAXOSMITHKLINE-A1027852A

PATIENT
  Age: 62 Year
  Sex: Female

DRUGS (2)
  1. ADVAIR [Suspect]
     Indication: MULTIPLE ALLERGIES
     Dosage: 1PUFF PER DAY
     Route: 055
     Dates: start: 2008
  2. SPIRIVA [Concomitant]

REACTIONS (6)
  - Upper limb fracture [Recovered/Resolved]
  - Fall [Recovered/Resolved]
  - Feeling jittery [Not Recovered/Not Resolved]
  - Palpitations [Not Recovered/Not Resolved]
  - Incorrect dose administered [Unknown]
  - Drug ineffective [Unknown]
